FAERS Safety Report 12965430 (Version 3)
Quarter: 2016Q4

REPORT INFORMATION
  Report Type: Spontaneous
  Country: US (occurrence: US)
  Receive Date: 20161122
  Receipt Date: 20161215
  Transmission Date: 20170207
  Serious: Yes (Other)
  Sender: FDA-Public Use
  Company Number: US-G+W LABS-GW2016US000182

PATIENT

DRUGS (2)
  1. CICLOPIROX. [Suspect]
     Active Substance: CICLOPIROX
     Indication: PRODUCT USED FOR UNKNOWN INDICATION
     Dosage: UNK, UNK
     Route: 061
     Dates: start: 201609, end: 201611
  2. FLUOROURACIL. [Suspect]
     Active Substance: FLUOROURACIL
     Indication: SKIN CANCER
     Dosage: UNK, BID
     Route: 061
     Dates: start: 201611, end: 2016

REACTIONS (9)
  - Scab [Recovered/Resolved]
  - Nausea [Not Recovered/Not Resolved]
  - Pruritus [Recovered/Resolved]
  - Parosmia [Not Recovered/Not Resolved]
  - Skin cancer [Recovering/Resolving]
  - Dysgeusia [Not Recovered/Not Resolved]
  - Skin warm [Recovered/Resolved]
  - Abdominal discomfort [Not Recovered/Not Resolved]
  - Food aversion [Recovered/Resolved]

NARRATIVE: CASE EVENT DATE: 201610
